FAERS Safety Report 15694656 (Version 1)
Quarter: 2018Q4

REPORT INFORMATION
  Report Type: Spontaneous
  Country: US (occurrence: US)
  Receive Date: 20181206
  Receipt Date: 20181206
  Transmission Date: 20190205
  Serious: No
  Sender: FDA-Public Use
  Company Number: US-ENDO PHARMACEUTICALS INC-2017-009173

PATIENT
  Sex: Male
  Weight: 106.12 kg

DRUGS (4)
  1. XIAFLEX [Suspect]
     Active Substance: COLLAGENASE CLOSTRIDIUM HISTOLYTICUM
     Dosage: CYCLE TWO: INJECTION ONE
     Route: 026
     Dates: start: 201803
  2. XIAFLEX [Suspect]
     Active Substance: COLLAGENASE CLOSTRIDIUM HISTOLYTICUM
     Dosage: CYCLE TWO: INJECTION TWO
     Route: 026
     Dates: start: 201803
  3. XIAFLEX [Suspect]
     Active Substance: COLLAGENASE CLOSTRIDIUM HISTOLYTICUM
     Indication: PEYRONIE^S DISEASE
     Dosage: CYCLE ONE: INJECTION ONE
     Route: 026
     Dates: start: 201801
  4. XIAFLEX [Suspect]
     Active Substance: COLLAGENASE CLOSTRIDIUM HISTOLYTICUM
     Dosage: CYCLE ONE: INJECTION TWO
     Route: 026
     Dates: start: 201801

REACTIONS (2)
  - Dysuria [Unknown]
  - Drug effect decreased [Unknown]

NARRATIVE: CASE EVENT DATE: 2018
